FAERS Safety Report 6013026-1 (Version None)
Quarter: 2008Q4

REPORT INFORMATION
  Report Type: 
  Country: None (occurrence: None)
  Receive Date: 20081219
  Receipt Date: 20081211
  Transmission Date: 20090506
  Serious: Yes (Hospitalization)
  Sender: FDA-Public Use
  Company Number: NL-PFIZER INC-2008153541

PATIENT

DRUGS (3)
  1. DOXAZOSIN MESILATE [Suspect]
     Indication: HYPERTENSION
     Route: 048
     Dates: start: 20080201
  2. HYDROCHLOROTHIAZIDE [Concomitant]
  3. UNSPECIFIED ACE INHIBITOR [Concomitant]

REACTIONS (1)
  - DELIRIUM [None]
